FAERS Safety Report 14834298 (Version 5)
Quarter: 2018Q2

REPORT INFORMATION
  Report Type: Spontaneous
  Country: US (occurrence: US)
  Receive Date: 20180501
  Receipt Date: 20180611
  Transmission Date: 20180711
  Serious: Yes (Other)
  Sender: FDA-Public Use
  Company Number: US-PFIZER INC-2018173981

PATIENT
  Age: 70 Year
  Sex: Female

DRUGS (1)
  1. XELJANZ [Suspect]
     Active Substance: TOFACITINIB CITRATE
     Dosage: 5 MG, 2X/DAY
     Route: 048

REACTIONS (9)
  - Intervertebral disc degeneration [Unknown]
  - Joint range of motion decreased [Unknown]
  - Arthritis [Unknown]
  - Synovitis [Unknown]
  - Swelling [Unknown]
  - Musculoskeletal stiffness [Unknown]
  - Post-traumatic neck syndrome [Unknown]
  - Helicobacter gastritis [Unknown]
  - Weight decreased [Unknown]
